FAERS Safety Report 12294997 (Version 4)
Quarter: 2016Q3

REPORT INFORMATION
  Report Type: Spontaneous
  Country: CZ (occurrence: CZ)
  Receive Date: 20160422
  Receipt Date: 20160722
  Transmission Date: 20161109
  Serious: Yes (Hospitalization, Other)
  Sender: FDA-Public Use
  Company Number: CZ-AMGEN-CZESP2016050437

PATIENT
  Age: 58 Year
  Sex: Female

DRUGS (22)
  1. HYDROCHLOROTHIAZID LECIVA [Concomitant]
     Dosage: 25 MG, 1X/DAY, ONE TABLET IN THE MORNING
  2. SERTRALINE [Concomitant]
     Active Substance: SERTRALINE HYDROCHLORIDE
     Indication: INVASIVE BREAST CARCINOMA
     Dosage: 100 MG, 1X/DAY, ONE TABLET IN THE MORNING
  3. VEROSPIRON [Concomitant]
     Active Substance: SPIRONOLACTONE
     Indication: INVASIVE BREAST CARCINOMA
  4. HYDROCHLOROTHIAZID LECIVA [Concomitant]
     Dosage: 25 MG, 1X/DAY, ONE TABLET IN THE MORNING
  5. METHOTREXATUM                      /00113801/ [Concomitant]
     Dosage: 7.5 MG, WEEKLY
  6. MICARDIS [Concomitant]
     Active Substance: TELMISARTAN
     Indication: INVASIVE BREAST CARCINOMA
  7. VEROSPIRON [Concomitant]
     Active Substance: SPIRONOLACTONE
     Dosage: 50 MG, 1X/DAY, ONE TABLET IN THE MORNING
  8. BETALOL                            /00030002/ [Concomitant]
     Indication: INVASIVE BREAST CARCINOMA
     Dosage: 200 MG, 1X/DAY, ONE TABLET IN THE MORNING
  9. RIVOTRIL [Concomitant]
     Active Substance: CLONAZEPAM
     Dosage: 0.5 MG, UNK
  10. MICARDISPLUS [Concomitant]
     Active Substance: HYDROCHLOROTHIAZIDE\TELMISARTAN
     Dosage: 12.5 MG/80 MG, 1X/DAY
  11. ENBREL [Suspect]
     Active Substance: ETANERCEPT
     Indication: PSORIATIC ARTHROPATHY
     Dosage: 50 MG, WEEKLY
     Route: 065
     Dates: start: 20141106, end: 20160229
  12. ENBREL [Suspect]
     Active Substance: ETANERCEPT
     Dosage: UNK
     Route: 065
     Dates: end: 20160317
  13. SERTRALINE [Concomitant]
     Active Substance: SERTRALINE HYDROCHLORIDE
     Dosage: 100 MG, 1X/DAY, ONE TABLET IN THE MORNING
  14. BETALOC                            /00376902/ [Concomitant]
     Active Substance: METOPROLOL TARTRATE
     Dosage: 200 MG, 1X/DAY, ONE TABLET IN THE MORNING
  15. MTX [Concomitant]
     Active Substance: METHOTREXATE SODIUM
     Indication: INVASIVE BREAST CARCINOMA
     Dosage: 7.5 MG, ^1X5^
  16. EUTHYROX [Concomitant]
     Active Substance: LEVOTHYROXINE SODIUM
     Dosage: 50 UG, 1X/DAY, ONE TABLET IN THE MORNING
  17. HYDROCHLOROTHIAZID LECIVA [Concomitant]
     Dosage: 25 MG, 1X/DAY, ONE TABLET IN THE MORNING
  18. ENBREL [Suspect]
     Active Substance: ETANERCEPT
     Dosage: UNK
     Route: 065
  19. BRUFEN                             /00109201/ [Concomitant]
     Active Substance: IBUPROFEN
     Indication: INVASIVE BREAST CARCINOMA
     Dosage: 400 MG, UNK
  20. EUTHYROX [Concomitant]
     Active Substance: LEVOTHYROXINE SODIUM
     Indication: INVASIVE BREAST CARCINOMA
     Dosage: 50 UG, 1X/DAY, ONE TABLET IN THE MORNING
  21. RIVOTRIL [Concomitant]
     Active Substance: CLONAZEPAM
     Indication: INVASIVE BREAST CARCINOMA
  22. VEROSPIRON [Concomitant]
     Active Substance: SPIRONOLACTONE
     Dosage: 50 MG, 1X/DAY, ONE TABLET IN THE MORNING

REACTIONS (1)
  - Invasive breast carcinoma [Not Recovered/Not Resolved]

NARRATIVE: CASE EVENT DATE: 20160229
